FAERS Safety Report 9342082 (Version 1)
Quarter: 2013Q2

REPORT INFORMATION
  Report Type: Spontaneous
  Country: CH (occurrence: CH)
  Receive Date: 20130611
  Receipt Date: 20130611
  Transmission Date: 20140414
  Serious: Yes (Other)
  Sender: FDA-Public Use
  Company Number: CH-MYLANLABS-2013S1011964

PATIENT
  Age: 49 Year
  Sex: Male

DRUGS (8)
  1. ITRACONAZOLE [Suspect]
     Indication: TRICHOPHYTIC GRANULOMA
     Dosage: INCREASED TO 300MG DAILY AFTER 8W WITH FORMULATION SWITCH
     Route: 065
  2. ITRACONAZOLE [Interacting]
     Indication: TRICHOPHYTIC GRANULOMA
     Dosage: 300MG DAILY
     Route: 042
  3. ITRACONAZOLE [Interacting]
     Indication: TRICHOPHYTIC GRANULOMA
     Dosage: 300MG DAILY
     Route: 048
  4. TACROLIMUS [Interacting]
     Indication: IMMUNOSUPPRESSANT DRUG THERAPY
     Route: 065
  5. RIFAMPICIN [Interacting]
     Indication: STREPTOCOCCAL SEPSIS
     Route: 065
  6. PREDNISONE [Concomitant]
     Indication: IMMUNOSUPPRESSANT DRUG THERAPY
     Route: 065
  7. AZATHIOPRINE [Concomitant]
     Indication: IMMUNOSUPPRESSANT DRUG THERAPY
     Route: 065
  8. FLUCLOXACILLIN [Concomitant]
     Indication: STREPTOCOCCAL SEPSIS
     Route: 065

REACTIONS (5)
  - Staphylococcal sepsis [Unknown]
  - Drug interaction [Recovered/Resolved]
  - Immunosuppressant drug level increased [Recovered/Resolved]
  - Drug interaction [Unknown]
  - Drug level decreased [Unknown]
